FAERS Safety Report 9101709 (Version 1)
Quarter: 2013Q1

REPORT INFORMATION
  Report Type: Spontaneous
  Country: IT (occurrence: IT)
  Receive Date: 20130218
  Receipt Date: 20130218
  Transmission Date: 20140127
  Serious: Yes (Hospitalization)
  Sender: FDA-Public Use
  Company Number: IT-MERCK-1302ITA006852

PATIENT
  Age: 40 Year
  Sex: Female

DRUGS (7)
  1. CANCIDAS [Suspect]
     Indication: SYSTEMIC CANDIDA
     Dosage: 50 MG, QD
     Dates: start: 20130111
  2. CLINDAMYCIN [Concomitant]
     Dosage: UNK
  3. MEROPENEM [Concomitant]
     Dosage: UNK
  4. TIGECYCLINE [Concomitant]
     Dosage: UNK
  5. AMPHOTERICIN B [Concomitant]
     Dosage: UNK
  6. GANCICLOVIR [Concomitant]
  7. DAPTOMYCIN [Concomitant]

REACTIONS (1)
  - Cholestasis [Unknown]
